FAERS Safety Report 5128725-3 (Version None)
Quarter: 2006Q4

REPORT INFORMATION
  Report Type: 
  Country: None (occurrence: None)
  Receive Date: 20061011
  Receipt Date: 20060927
  Transmission Date: 20070319
  Serious: No
  Sender: FDA-Public Use
  Company Number: 06H-163-0310548-00

PATIENT
  Age: 40 Year
  Sex: Male

DRUGS (9)
  1. ETOPOSIDE [Suspect]
     Indication: NON-HODGKIN'S LYMPHOMA
  2. CYCLOPHOSPHAMIDE [Suspect]
     Indication: NON-HODGKIN'S LYMPHOMA
     Dosage: 1800 MG/M**2,
  3. DOXORUBICIN HCL [Suspect]
     Indication: NON-HODGKIN'S LYMPHOMA
  4. VINCRISTINE [Suspect]
     Indication: NON-HODGKIN'S LYMPHOMA
  5. PREDNISONE TAB [Suspect]
     Indication: NON-HODGKIN'S LYMPHOMA
  6. DAUNORUBICIN HCL [Suspect]
     Indication: NON-HODGKIN'S LYMPHOMA
     Dosage: 60 MG/M**2,
  7. METHOTREXATE [Suspect]
     Indication: NON-HODGKIN'S LYMPHOMA
  8. CYTARABINE [Suspect]
     Indication: NON-HODGKIN'S LYMPHOMA
  9. RADIATION THERAPY (THERAPEUTIC RADIOPHARAMCEUTICALS) [Suspect]
     Indication: NON-HODGKIN'S LYMPHOMA
     Dosage: 3000 CGY,

REACTIONS (5)
  - ANAEMIA [None]
  - CHRONIC MYELOID LEUKAEMIA [None]
  - MONOCYTOSIS [None]
  - SPLENOMEGALY [None]
  - THROMBOCYTOPENIA [None]
